FAERS Safety Report 10239398 (Version 3)
Quarter: 2014Q4

REPORT INFORMATION
  Report Type: Spontaneous
  Country: US (occurrence: US)
  Receive Date: 20140616
  Receipt Date: 20141015
  Transmission Date: 20150528
  Serious: Yes (Life-Threatening, Hospitalization, Disabling, Other)
  Sender: FDA-Public Use
  Company Number: US-BAYER-2014-088671

PATIENT
  Age: 25 Year
  Sex: Female
  Weight: 51.25 kg

DRUGS (6)
  1. ULTRAM [Concomitant]
     Active Substance: TRAMADOL HYDROCHLORIDE
  2. ALBUTEROL. [Concomitant]
     Active Substance: ALBUTEROL
  3. ZOLOFT [Concomitant]
     Active Substance: SERTRALINE HYDROCHLORIDE
     Dosage: 150 MG, UNK
     Route: 048
  4. DEPO-PROVERA [Concomitant]
     Active Substance: MEDROXYPROGESTERONE ACETATE
     Indication: CONTRACEPTION
  5. MIRENA [Suspect]
     Active Substance: LEVONORGESTREL
     Indication: CONTRACEPTION
     Dosage: 20 MCG/24HR, CONT
     Route: 015
     Dates: start: 20080722, end: 20090708
  6. FLEXERIL [Concomitant]
     Active Substance: CYCLOBENZAPRINE HYDROCHLORIDE

REACTIONS (12)
  - Abdominal pain lower [None]
  - Injury [None]
  - Genital haemorrhage [None]
  - Post procedural infection [None]
  - Procedural pain [None]
  - Device dislocation [None]
  - Complication of device removal [None]
  - Balance disorder [None]
  - Uterine perforation [None]
  - Device breakage [None]
  - Scar [None]
  - General physical health deterioration [None]

NARRATIVE: CASE EVENT DATE: 200907
